FAERS Safety Report 5838328-0 (Version None)
Quarter: 2008Q3

REPORT INFORMATION
  Report Type: 
  Country: None (occurrence: None)
  Receive Date: 20080808
  Receipt Date: 20070728
  Transmission Date: 20090109
  Serious: Yes (Other)
  Sender: FDA-Public Use
  Company Number: IT-ROCHE-571247

PATIENT
  Sex: Male

DRUGS (2)
  1. PEGASYS [Suspect]
     Route: 065
     Dates: start: 20070110, end: 20070611
  2. RIBAVIRIN [Suspect]
     Route: 065
     Dates: start: 20070110, end: 20070611

REACTIONS (2)
  - ARRHYTHMIA [None]
  - RENAL FAILURE [None]
